FAERS Safety Report 8890340 (Version 1)
Quarter: 2012Q4

REPORT INFORMATION
  Report Type: 
  Country: US (occurrence: US)
  Receive Date: 20121107
  Receipt Date: 20121107
  Transmission Date: 20130627
  Serious: Yes (Hospitalization)
  Sender: FDA-Public Use
  Company Number: US-CELGENEUS-163-20785-12110518

PATIENT
  Sex: Male

DRUGS (1)
  1. THALOMID [Suspect]
     Indication: KAPOSI^S SARCOMA NOS
     Dosage: 50 Milligram
     Route: 048
     Dates: start: 201210

REACTIONS (2)
  - Malnutrition [Unknown]
  - Kaposi^s sarcoma [Unknown]
